FAERS Safety Report 7922267-5 (Version None)
Quarter: 2011Q4

REPORT INFORMATION
  Report Type: 
  Country: None (occurrence: None)
  Receive Date: 20111117
  Receipt Date: 20110118
  Transmission Date: 20120403
  Serious: No
  Sender: FDA-Public Use
  Company Number: US-AMGEN-USASP2011003280

PATIENT
  Age: 54 Year
  Sex: Female

DRUGS (2)
  1. ENBREL [Suspect]
     Indication: PSORIATIC ARTHROPATHY
     Dates: start: 20101202
  2. METHOTREXATE [Concomitant]
     Dates: start: 20100301

REACTIONS (6)
  - CONTUSION [None]
  - INJECTION SITE PAIN [None]
  - NIGHT SWEATS [None]
  - FATIGUE [None]
  - INJECTION SITE REACTION [None]
  - WEIGHT DECREASED [None]
